FAERS Safety Report 16018942 (Version 1)
Quarter: 2019Q1

REPORT INFORMATION
  Report Type: Spontaneous
  Country: US (occurrence: US)
  Receive Date: 20190228
  Receipt Date: 20190228
  Transmission Date: 20190418
  Serious: Yes (Hospitalization)
  Sender: FDA-Public Use
  Company Number: US-VALIDUS PHARMACEUTICALS LLC-US-2018VAL000948

PATIENT
  Age: 76 Year
  Sex: Female
  Weight: 70.75 kg

DRUGS (3)
  1. LASIX [Suspect]
     Active Substance: FUROSEMIDE
     Indication: CARDIAC FAILURE CONGESTIVE
     Dosage: 40 MG, QD
     Route: 065
     Dates: start: 20180223, end: 20180301
  2. LASIX [Suspect]
     Active Substance: FUROSEMIDE
     Indication: LEFT VENTRICULAR FAILURE
     Dosage: UNK
     Route: 065
     Dates: start: 20180307
  3. TOPROL XL [Suspect]
     Active Substance: METOPROLOL SUCCINATE
     Indication: ATRIAL FIBRILLATION
     Dosage: 50 MG, BID
     Route: 065
     Dates: start: 20180227

REACTIONS (1)
  - Hypotension [Recovered/Resolved]

NARRATIVE: CASE EVENT DATE: 20180301
